FAERS Safety Report 10007974 (Version 1)
Quarter: 2014Q1

REPORT INFORMATION
  Report Type: Report from Study
  Country: AR (occurrence: AR)
  Receive Date: 20140313
  Receipt Date: 20140313
  Transmission Date: 20141002
  Serious: Yes (Hospitalization, Other)
  Sender: FDA-Public Use
  Company Number: AR-BRISTOL-MYERS SQUIBB COMPANY-20354288

PATIENT
  Age: 25 Year
  Sex: Female

DRUGS (1)
  1. ORENCIA [Suspect]
     Dosage: 2VIALS
     Route: 042

REACTIONS (1)
  - Intestinal perforation [Recovering/Resolving]
